FAERS Safety Report 7052068-4 (Version None)
Quarter: 2010Q4

REPORT INFORMATION
  Report Type: 
  Country: None (occurrence: None)
  Receive Date: 20101018
  Receipt Date: 20101018
  Transmission Date: 20110411
  Serious: Yes (Life-Threatening, Hospitalization)
  Sender: FDA-Public Use
  Company Number: None

PATIENT
  Age: 65 Year
  Sex: Male
  Weight: 77 kg

DRUGS (2)
  1. IMATINIB [Suspect]
     Indication: CHRONIC MYELOID LEUKAEMIA
     Dosage: 400 MG EVERY DAY PO
     Route: 048
     Dates: start: 20060324, end: 20100927
  2. IMATINIB [Suspect]
     Indication: HYPERGAMMAGLOBULINAEMIA BENIGN MONOCLONAL
     Dosage: 400 MG EVERY DAY PO
     Route: 048
     Dates: start: 20060324, end: 20100927

REACTIONS (4)
  - PALLOR [None]
  - PLEURAL EFFUSION [None]
  - PULMONARY CONGESTION [None]
  - PULMONARY OEDEMA [None]
